FAERS Safety Report 7378950-6 (Version None)
Quarter: 2011Q1

REPORT INFORMATION
  Report Type: 
  Country: None (occurrence: None)
  Receive Date: 20110328
  Receipt Date: 20110316
  Transmission Date: 20110831
  Serious: Yes (Other)
  Sender: FDA-Public Use
  Company Number: PHHY2011US22191

PATIENT
  Age: 20 Year
  Sex: Male

DRUGS (5)
  1. TACROLIMUS [Suspect]
     Indication: MYELODYSPLASTIC SYNDROME
  2. GANCICLOVIR [Suspect]
  3. COTRIM [Suspect]
  4. MYCOPHENOLATE MOFETIL [Suspect]
  5. ITRACONAZOLE [Suspect]

REACTIONS (1)
  - NEUTROPHIL PELGER-HUET ANOMALY PRESENT [None]
